FAERS Safety Report 13783393 (Version 1)
Quarter: 2017Q3

REPORT INFORMATION
  Report Type: Spontaneous
  Country: RO (occurrence: RO)
  Receive Date: 20170724
  Receipt Date: 20170724
  Transmission Date: 20171127
  Serious: Yes (Death, Other)
  Sender: FDA-Public Use
  Company Number: RO-PFIZER INC-2017278295

PATIENT
  Age: 62 Year
  Sex: Male
  Weight: 85 kg

DRUGS (18)
  1. ACTOVEGIN [Concomitant]
     Active Substance: BLOOD, BOVINE
     Dosage: UNK UNK, THREE TIMES A DAY (MORNING, MIDDAY AND EVENING)
  2. SUTENT [Suspect]
     Active Substance: SUNITINIB MALATE
     Indication: RENAL CANCER METASTATIC
     Dosage: 50 MG, UNK
     Dates: start: 20170202
  3. ROVASTANED [Concomitant]
     Dosage: 10 MG, ONCE A DAY(EVENING)
  4. SMECTA [Concomitant]
     Active Substance: MONTMORILLONITE
     Dosage: UNK, THREE TIMES A DAY (TWO SACHETS IN THE MORNING, TWO IN THE MIDDAY AND TWO IN THE EVENING)
  5. SERLIFT [Concomitant]
     Active Substance: SERTRALINE HYDROCHLORIDE
     Dosage: 50 MG, TWICE A DAY (MORNING AND EVENING)
  6. ATACAND [Concomitant]
     Active Substance: CANDESARTAN CILEXETIL
     Dosage: 8 MG, TWICE A DAY(ONE IN MORNING AND ONE IN EVENING)
  7. OLICARD [Concomitant]
     Active Substance: ISOSORBIDE MONONITRATE
     Dosage: 40 MG, ONCE A DAY (MORNING)
  8. LANTUS [Concomitant]
     Active Substance: INSULIN GLARGINE
     Dosage: UNK, TWICE A DAY (36UI IN THE MORNING AND 32UI IN THE EVENING)
  9. ASPENTER [Concomitant]
     Active Substance: ASPIRIN
     Dosage: 75 MG, ONCE A DAY (MIDDAY)
  10. THIOSSEN [Concomitant]
     Dosage: 600 MG, ONCE A DAY (MORNING)
  11. SERMION [Concomitant]
     Active Substance: NICERGOLINE
     Dosage: 30 MG, TWICE A DAY (ONE IN MORNING AND ONE IN EVENING)
  12. OMNIC [Concomitant]
     Active Substance: TAMSULOSIN HYDROCHLORIDE
     Dosage: UNK UNK, ONCE A DAY (EVENING)
  13. INSULIN RAPID [Concomitant]
     Active Substance: INSULIN NOS
     Dosage: UNK, THREE TIMES A DAY (20UI IN THE MORNING AND AT MIDDAY AND 18UI IN THE EVENING)
  14. IMODIUM [Concomitant]
     Active Substance: LOPERAMIDE HYDROCHLORIDE
     Indication: DIARRHOEA
     Dosage: UNK, AS NEEDED (AFTER ANY DIARRHEA STOOL)
  15. NEUROSSEN [Concomitant]
     Dosage: 300 MG, ONCE A DAY (MORNING)
  16. PENTOXI RETARD [Concomitant]
     Active Substance: PENTOXIFYLLINE
     Dosage: 400 MG, TWICE A DAY (MORNING AND EVENING),
  17. NEBILET [Concomitant]
     Active Substance: NEBIVOLOL
     Dosage: 5 MG, ONCE A DAY (MORNING)
  18. TROMBOSTOP [Concomitant]
     Active Substance: ACENOCOUMAROL
     Dosage: 2 MG, TWICE A DAY (EVENING)

REACTIONS (4)
  - Neoplasm progression [Fatal]
  - Diarrhoea [Not Recovered/Not Resolved]
  - Hyperchlorhydria [Not Recovered/Not Resolved]
  - Coma [Fatal]

NARRATIVE: CASE EVENT DATE: 20170607
